FAERS Safety Report 6483244-7 (Version None)
Quarter: 2009Q4

REPORT INFORMATION
  Report Type: 
  Country: None (occurrence: None)
  Receive Date: 20091209
  Receipt Date: 20091201
  Transmission Date: 20100525
  Serious: Yes (Other)
  Sender: FDA-Public Use
  Company Number: US-SANOFI-AVENTIS-A03200904983

PATIENT
  Age: 66 Year
  Sex: Female
  Weight: 99 kg

DRUGS (6)
  1. ZOLPIDEM TARTRATE [Suspect]
     Indication: INSOMNIA
     Route: 048
     Dates: start: 20010101, end: 20090201
  2. DARVOCET-N 100 [Concomitant]
     Dosage: DARVOCET N-100 EVERY 6 HOURS PRN
  3. FLEXERIL [Concomitant]
     Dates: start: 20020101, end: 20090101
  4. VITAMIN E [Concomitant]
     Indication: ANTIOXIDANT THERAPY
  5. ASCORBIC ACID [Concomitant]
  6. VITAMIN B COMPLEX CAP [Concomitant]
     Indication: ROUTINE HEALTH MAINTENANCE
     Dosage: 1 TABLET DAILY

REACTIONS (6)
  - ABNORMAL BEHAVIOUR [None]
  - AMNESIA [None]
  - DISSOCIATIVE FUGUE [None]
  - SOMNAMBULISM [None]
  - SUTURE RUPTURE [None]
  - TENDON INJURY [None]
